FAERS Safety Report 18325724 (Version 1)
Quarter: 2020Q3

REPORT INFORMATION
  Report Type: Spontaneous
  Country: US (occurrence: US)
  Receive Date: 20200929
  Receipt Date: 20200929
  Transmission Date: 20201103
  Serious: Yes (Other)
  Sender: FDA-Public Use
  Company Number: US-PFIZER INC-2020373852

PATIENT

DRUGS (1)
  1. VIAGRA [Suspect]
     Active Substance: SILDENAFIL CITRATE
     Dosage: UNK

REACTIONS (6)
  - Erectile dysfunction [Unknown]
  - Therapeutic product effect incomplete [Unknown]
  - Penile pain [Unknown]
  - Phimosis [Unknown]
  - Penis disorder [Unknown]
  - Penile odour [Unknown]
